FAERS Safety Report 8406145-3 (Version None)
Quarter: 2012Q2

REPORT INFORMATION
  Report Type: 
  Country: None (occurrence: None)
  Receive Date: 20120604
  Receipt Date: 20120528
  Transmission Date: 20120825
  Serious: Yes (Hospitalization, Other)
  Sender: FDA-Public Use
  Company Number: JP-JNJFOC-20120309038

PATIENT
  Age: 91 Year
  Sex: Female
  Weight: 15.88 kg

DRUGS (16)
  1. LEVOFLOXACIN [Concomitant]
     Route: 048
  2. LASIX [Concomitant]
     Indication: OEDEMA PERIPHERAL
     Route: 048
     Dates: start: 20120303, end: 20120324
  3. ALDACTONE [Concomitant]
     Indication: OEDEMA PERIPHERAL
     Route: 048
     Dates: start: 20120303, end: 20120324
  4. MUCOSOLVAN [Concomitant]
     Route: 048
  5. THEO-DUR [Concomitant]
     Route: 048
  6. GLAKAY [Concomitant]
     Indication: OSTEOPOROSIS
     Route: 048
     Dates: start: 20091104, end: 20120324
  7. FUROSEMIDE [Concomitant]
     Indication: OEDEMA
     Route: 048
     Dates: start: 20120305, end: 20120324
  8. MENATETRENONE [Concomitant]
     Indication: OSTEOPOROSIS
     Route: 048
     Dates: start: 20091104, end: 20120324
  9. BISOLVON [Concomitant]
     Route: 048
  10. ROCALTROL [Concomitant]
     Indication: OSTEOPOROSIS
     Route: 048
     Dates: start: 20091027, end: 20120324
  11. KAMAG G [Concomitant]
     Indication: CONSTIPATION
     Route: 048
     Dates: start: 20071217, end: 20120324
  12. GALANTAMINE HYDROBROMIDE [Suspect]
     Route: 048
     Dates: start: 20110513, end: 20110613
  13. LIVALO [Concomitant]
     Indication: HYPERCHOLESTEROLAEMIA
     Route: 048
     Dates: start: 20061106, end: 20120323
  14. ACETAMINOPHEN [Concomitant]
     Indication: PYREXIA
     Route: 048
  15. GALANTAMINE HYDROBROMIDE [Suspect]
     Indication: DEMENTIA ALZHEIMER'S TYPE
     Route: 048
     Dates: start: 20110614, end: 20120325
  16. RABEPRAZOLE SODIUM [Concomitant]
     Indication: GASTROOESOPHAGEAL REFLUX DISEASE
     Route: 048
     Dates: start: 20120305, end: 20120324

REACTIONS (3)
  - SOMNOLENCE [None]
  - DECREASED APPETITE [None]
  - NASOPHARYNGITIS [None]
